FAERS Safety Report 25488212 (Version 2)
Quarter: 2025Q3

REPORT INFORMATION
  Report Type: Spontaneous
  Country: CA (occurrence: CA)
  Receive Date: 20250627
  Receipt Date: 20250702
  Transmission Date: 20251021
  Serious: Yes (Other)
  Sender: TEVA
  Company Number: CA-TEVA-VS-3344409

PATIENT
  Age: 78 Year
  Sex: Male

DRUGS (1)
  1. LEVOFLOXACIN [Suspect]
     Active Substance: LEVOFLOXACIN
     Indication: Pneumonia
     Route: 065
     Dates: start: 20160612

REACTIONS (7)
  - Drug hypersensitivity [Unknown]
  - Pain [Not Recovered/Not Resolved]
  - Peripheral swelling [Unknown]
  - Limb mass [Unknown]
  - Illness [Unknown]
  - Impaired work ability [Not Recovered/Not Resolved]
  - Loss of personal independence in daily activities [Not Recovered/Not Resolved]

NARRATIVE: CASE EVENT DATE: 20160601
